FAERS Safety Report 8575997-9 (Version None)
Quarter: 2012Q3

REPORT INFORMATION
  Report Type: 
  Country: None (occurrence: None)
  Receive Date: 20120724
  Receipt Date: 20120711
  Transmission Date: 20120928
  Serious: Yes (Other)
  Sender: FDA-Public Use
  Company Number: 2012P1049966

PATIENT
  Age: 14 Year

DRUGS (3)
  1. LEVETIRACETAM [Suspect]
     Indication: JUVENILE MYOCLONIC EPILEPSY
     Dosage: 30 MG/KG] QD
  2. ETHOSUXIMIDE [Concomitant]
  3. VALPROATE SODIUM [Concomitant]

REACTIONS (2)
  - CONDITION AGGRAVATED [None]
  - PETIT MAL EPILEPSY [None]
